FAERS Safety Report 9209716 (Version 1)
Quarter: 2013Q2

REPORT INFORMATION
  Report Type: Spontaneous
  Country: US (occurrence: US)
  Receive Date: 20130404
  Receipt Date: 20130404
  Transmission Date: 20140414
  Serious: No
  Sender: FDA-Public Use
  Company Number: US-BAYER-2013-042708

PATIENT
  Age: 63 Year
  Sex: Female

DRUGS (2)
  1. ALEVE CAPLET [Suspect]
     Indication: TRISMUS
     Dosage: 2 DF, BID
     Route: 048
     Dates: start: 20130322, end: 20130326
  2. DIAZIDE [Concomitant]

REACTIONS (6)
  - Pruritus [Not Recovered/Not Resolved]
  - Ear pruritus [Not Recovered/Not Resolved]
  - Pruritus [Not Recovered/Not Resolved]
  - Local swelling [Not Recovered/Not Resolved]
  - Ear swelling [Not Recovered/Not Resolved]
  - Tongue discolouration [Not Recovered/Not Resolved]
